FAERS Safety Report 7920347-1 (Version None)
Quarter: 2011Q4

REPORT INFORMATION
  Report Type: 
  Country: None (occurrence: None)
  Receive Date: 20111117
  Receipt Date: 20111107
  Transmission Date: 20120403
  Serious: Yes (Hospitalization, Other)
  Sender: FDA-Public Use
  Company Number: US-ELI_LILLY_AND_COMPANY-US201111003451

PATIENT
  Sex: Female

DRUGS (5)
  1. DEPAKOTE [Concomitant]
     Dosage: UNK
  2. SEROQUEL [Concomitant]
     Dosage: UNK
  3. PROGRAF [Concomitant]
     Dosage: UNK
  4. LEVOTHYROXINE SODIUM [Concomitant]
     Dosage: UNK
  5. ZYPREXA [Suspect]
     Indication: ELEVATED MOOD
     Dosage: 20 MG, QD
     Dates: start: 20060101

REACTIONS (8)
  - OFF LABEL USE [None]
  - FALL [None]
  - ROAD TRAFFIC ACCIDENT [None]
  - DEPRESSION [None]
  - ANXIETY [None]
  - RENAL TRANSPLANT [None]
  - HEAD INJURY [None]
  - HAEMORRHAGE INTRACRANIAL [None]
